FAERS Safety Report 5361037-1 (Version None)
Quarter: 2007Q2

REPORT INFORMATION
  Report Type: 
  Country: None (occurrence: None)
  Receive Date: 20070618
  Receipt Date: 20070606
  Transmission Date: 20071010
  Serious: Yes (Other)
  Sender: FDA-Public Use
  Company Number: FR-PFIZER INC-2007047007

PATIENT
  Age: 45 Year
  Sex: Male

DRUGS (1)
  1. LYRICA [Suspect]
     Indication: TRIGEMINAL NEURALGIA

REACTIONS (3)
  - GAMMA-GLUTAMYLTRANSFERASE INCREASED [None]
  - HEADACHE [None]
  - TRANSAMINASES INCREASED [None]
